FAERS Safety Report 9338571 (Version 1)
Quarter: 2013Q2

REPORT INFORMATION
  Report Type: Spontaneous
  Country: US (occurrence: None)
  Receive Date: 20130605
  Receipt Date: 20130605
  Transmission Date: 20140414
  Serious: Yes (Other)
  Sender: FDA-Public Use
  Company Number: None

PATIENT
  Sex: 0

DRUGS (2)
  1. CARVEDILOL [Suspect]
     Dates: start: 20130223, end: 20130328
  2. CLOPIDOGREL [Suspect]

REACTIONS (2)
  - Drug dispensing error [None]
  - Product label confusion [None]
